FAERS Safety Report 6251990-6 (Version None)
Quarter: 2009Q2

REPORT INFORMATION
  Report Type: 
  Country: None (occurrence: None)
  Receive Date: 20090630
  Receipt Date: 20040127
  Transmission Date: 20091009
  Serious: Yes (Hospitalization)
  Sender: FDA-Public Use
  Company Number: US-ROCHE-638323

PATIENT
  Sex: Male

DRUGS (7)
  1. ENFUVIRTIDE [Suspect]
     Route: 065
     Dates: start: 20030715, end: 20040111
  2. VIREAD [Concomitant]
     Dates: start: 20030102, end: 20040111
  3. COMBIVIR [Concomitant]
     Dates: start: 20030403, end: 20031107
  4. EPIVIR [Concomitant]
     Dates: start: 20030807, end: 20040111
  5. EMTRIVA [Concomitant]
     Dates: start: 20030808, end: 20040111
  6. REYATAZ [Concomitant]
     Dates: start: 20030808, end: 20040111
  7. BACTRIM [Concomitant]
     Dates: end: 20040111

REACTIONS (3)
  - EPISTAXIS [None]
  - RECTAL HAEMORRHAGE [None]
  - VOMITING [None]
